FAERS Safety Report 8393843-3 (Version None)
Quarter: 2012Q2

REPORT INFORMATION
  Report Type: 
  Country: None (occurrence: None)
  Receive Date: 20120530
  Receipt Date: 20120524
  Transmission Date: 20120825
  Serious: No
  Sender: FDA-Public Use
  Company Number: US-PFIZER INC-2012126888

PATIENT
  Sex: Female

DRUGS (1)
  1. CAMPTOSAR [Suspect]
     Indication: PANCREATIC CARCINOMA
     Dosage: 300 MG, EVERY 2 WEEKS
     Dates: start: 20120203

REACTIONS (2)
  - DISEASE PROGRESSION [None]
  - PANCREATIC CARCINOMA [None]
